FAERS Safety Report 14831299 (Version 2)
Quarter: 2018Q2

REPORT INFORMATION
  Report Type: Spontaneous
  Country: US (occurrence: US)
  Receive Date: 20180501
  Receipt Date: 20180511
  Transmission Date: 20180711
  Serious: No
  Sender: FDA-Public Use
  Company Number: US-AMGEN-USASP2018055533

PATIENT
  Age: 43 Year
  Sex: Female

DRUGS (2)
  1. ENBREL [Suspect]
     Active Substance: ETANERCEPT
     Indication: PSORIATIC ARTHROPATHY
     Dosage: 50 MG, QWK
     Route: 065
     Dates: start: 20180411, end: 2018
  2. ENBREL [Suspect]
     Active Substance: ETANERCEPT
     Dosage: 50 MG, QWK
     Route: 065
     Dates: start: 2018, end: 2018

REACTIONS (14)
  - Tremor [Unknown]
  - Swelling [Unknown]
  - Skin burning sensation [Unknown]
  - Erythema [Unknown]
  - Chills [Unknown]
  - Peripheral swelling [Unknown]
  - Drug ineffective [Unknown]
  - Feeling abnormal [Unknown]
  - Stress [Unknown]
  - Nausea [Unknown]
  - Injection site urticaria [Unknown]
  - Injection site haemorrhage [Unknown]
  - Flushing [Unknown]
  - Injection site recall reaction [Unknown]

NARRATIVE: CASE EVENT DATE: 2018
